FAERS Safety Report 25435872 (Version 1)
Quarter: 2025Q2

REPORT INFORMATION
  Report Type: Spontaneous
  Country: US (occurrence: US)
  Receive Date: 20250613
  Receipt Date: 20250613
  Transmission Date: 20250716
  Serious: Yes (Hospitalization, Other)
  Sender: ALEXION PHARMACEUTICALS
  Company Number: US-AstraZeneca-CH-00889229A

PATIENT

DRUGS (1)
  1. SOLIRIS [Suspect]
     Active Substance: ECULIZUMAB
     Indication: Myasthenia gravis

REACTIONS (8)
  - Suicide attempt [Unknown]
  - Dementia Alzheimer^s type [Unknown]
  - Brain fog [Unknown]
  - Delirium [Unknown]
  - Bipolar disorder [Unknown]
  - Urinary tract infection [Unknown]
  - Stress [Unknown]
  - Therapeutic response shortened [Unknown]
